FAERS Safety Report 13469660 (Version 1)
Quarter: 2017Q2

REPORT INFORMATION
  Report Type: Spontaneous
  Country: US (occurrence: US)
  Receive Date: 20170422
  Receipt Date: 20170422
  Transmission Date: 20170830
  Serious: Yes (Death, Life-Threatening, Hospitalization, Other)
  Sender: FDA-Public Use
  Company Number: US-ZYDUS-014641

PATIENT
  Age: 81 Year
  Sex: Female

DRUGS (3)
  1. METOPROLOL. [Concomitant]
     Active Substance: METOPROLOL
     Indication: HEART RATE ABNORMAL
     Route: 065
  2. THIAMAZOLE [Concomitant]
     Active Substance: METHIMAZOLE
     Indication: HYPERTHYROIDISM
     Route: 065
  3. WARFARIN [Suspect]
     Active Substance: WARFARIN
     Indication: PROPHYLAXIS
     Route: 065

REACTIONS (28)
  - Pericardial haemorrhage [Unknown]
  - Confusional state [Unknown]
  - Pleural effusion [Unknown]
  - Condition aggravated [Unknown]
  - Abdominal tenderness [Unknown]
  - White blood cell count increased [Unknown]
  - Cardiomegaly [Unknown]
  - Inferior vena cava dilatation [Unknown]
  - International normalised ratio increased [Unknown]
  - Hypotension [Unknown]
  - Abdominal pain upper [Unknown]
  - Haemoglobin decreased [Unknown]
  - Dyspnoea [Unknown]
  - Abdominal pain [Unknown]
  - Heart rate irregular [Unknown]
  - Decreased appetite [Unknown]
  - Hepatic failure [Unknown]
  - Venous pressure jugular increased [Unknown]
  - Coagulopathy [Unknown]
  - Cardiac arrest [Fatal]
  - Nausea [Unknown]
  - Respiratory distress [Unknown]
  - Pulseless electrical activity [Recovered/Resolved]
  - Superior vena cava dilatation [Unknown]
  - Cardiac tamponade [Unknown]
  - Multiple organ dysfunction syndrome [Unknown]
  - Renal failure [Unknown]
  - Pericardial effusion [Unknown]
